FAERS Safety Report 5877244-5 (Version None)
Quarter: 2008Q3

REPORT INFORMATION
  Report Type: 
  Country: None (occurrence: None)
  Receive Date: 20080910
  Receipt Date: 20080829
  Transmission Date: 20090109
  Serious: Yes (Other)
  Sender: FDA-Public Use
  Company Number: US-PFIZER INC-2008073702

PATIENT
  Sex: Female

DRUGS (3)
  1. LYRICA [Suspect]
     Indication: FIBROMYALGIA
  2. CYMBALTA [Concomitant]
  3. ROZEREM [Concomitant]

REACTIONS (3)
  - DISSOCIATION [None]
  - HALLUCINATION [None]
  - ROAD TRAFFIC ACCIDENT [None]
